FAERS Safety Report 5000610-7 (Version None)
Quarter: 2006Q2

REPORT INFORMATION
  Report Type: 
  Country: None (occurrence: None)
  Receive Date: 20060512
  Receipt Date: 20060427
  Transmission Date: 20061013
  Serious: Yes (Hospitalization)
  Sender: FDA-Public Use
  Company Number: HQWYE038228APR06

PATIENT
  Sex: Female
  Weight: 90.7 kg

DRUGS (12)
  1. ENBREL [Suspect]
     Indication: ASTHMA
     Route: 058
     Dates: start: 20060213
  2. ALBUTEROL SULFATE AUTOHALER [Concomitant]
     Indication: ASTHMA
     Dosage: 2 PUFFS AS NEEDED
     Route: 055
     Dates: start: 19760101
  3. ESTRADIOL [Concomitant]
     Dosage: 10 MG/DAY
     Dates: start: 20050101
  4. THYROXIN [Concomitant]
     Dosage: 0.1 MG/DAY
     Dates: start: 20050101
  5. FLONASE [Concomitant]
     Dosage: 100 MCG/DAY
     Dates: start: 20050901
  6. LISINOPRIL [Concomitant]
     Dosage: 10 MG/DAY
     Dates: start: 20040101
  7. HYDROCHLOROTHIAZIDE [Concomitant]
     Dosage: 25 MG/DAY
     Dates: start: 20040101
  8. FLOVENT [Concomitant]
     Indication: ASTHMA
     Dates: start: 20050301
  9. MEDROL [Concomitant]
     Indication: ASTHMA
     Dates: start: 20060313, end: 20060318
  10. MEDROL [Concomitant]
     Dates: start: 20060319
  11. FORADIL [Concomitant]
     Indication: ASTHMA
     Dates: start: 20051114
  12. SINGULAIR [Concomitant]
     Indication: ASTHMA
     Dates: start: 20020101

REACTIONS (4)
  - HEADACHE [None]
  - NECK PAIN [None]
  - VOMITING [None]
  - WHITE BLOOD CELL COUNT INCREASED [None]
